FAERS Safety Report 15140178 (Version 4)
Quarter: 2019Q1

REPORT INFORMATION
  Report Type: Report from Study
  Country: IT (occurrence: IT)
  Receive Date: 20180713
  Receipt Date: 20190128
  Transmission Date: 20190417
  Serious: Yes (Hospitalization, Other)
  Sender: FDA-Public Use
  Company Number: IT-MYLANLABS-2018M1050975

PATIENT
  Age: 29 Year
  Sex: Female

DRUGS (2)
  1. MIRTAZAPINE. [Suspect]
     Active Substance: MIRTAZAPINE
     Indication: MAJOR DEPRESSION
     Dosage: 180 MG, TOTAL
     Route: 048
     Dates: start: 20170720, end: 20170720
  2. DELORAZEPAM [Suspect]
     Active Substance: DELORAZEPAM
     Indication: INSOMNIA
     Dosage: 150 GTT, TOTAL
     Route: 048
     Dates: start: 20170720, end: 20170720

REACTIONS (2)
  - Drug abuse [Not Recovered/Not Resolved]
  - Sopor [Not Recovered/Not Resolved]

NARRATIVE: CASE EVENT DATE: 20170720
